FAERS Safety Report 9551588 (Version 1)
Quarter: 2013Q3

REPORT INFORMATION
  Report Type: Spontaneous
  Country: US (occurrence: None)
  Receive Date: 20130724
  Receipt Date: 20130724
  Transmission Date: 20140515
  Serious: Yes (Other)
  Sender: FDA-Public Use
  Company Number: PHEH2013US005963

PATIENT
  Age: 77 Year
  Sex: Female

DRUGS (2)
  1. AFINITOR (RAD) TABLET, 10MG [Suspect]
     Indication: BREAST CANCER
     Route: 048
     Dates: start: 20121220, end: 20130304
  2. EXEMESTANE [Concomitant]

REACTIONS (4)
  - Nausea [None]
  - Cough [None]
  - Fatigue [None]
  - Oedema [None]
